FAERS Safety Report 19838722 (Version 4)
Quarter: 2023Q1

REPORT INFORMATION
  Report Type: Spontaneous
  Country: US (occurrence: None)
  Receive Date: 20210916
  Receipt Date: 20230330
  Transmission Date: 20230417
  Serious: Yes (Other)
  Sender: FDA-Public Use
  Company Number: US-ULTRAGENYX PHARMACEUTICAL INC.-US-UGNX-21-00309

PATIENT
  Age: 0 Year
  Sex: Male
  Weight: 2.5 kg

DRUGS (1)
  1. DOJOLVI [Suspect]
     Active Substance: TRIHEPTANOIN
     Indication: Long-chain acyl-coenzyme A dehydrogenase deficiency
     Dosage: 0.5 G/KG/DAY AND ADVANCED 0.5 G/KG EVERY 5-7 DAYS, VIA NG TUBE
     Dates: start: 20210824, end: 20210902

REACTIONS (1)
  - Necrotising colitis [Recovered/Resolved]

NARRATIVE: CASE EVENT DATE: 20210902
